FAERS Safety Report 6682686-4 (Version None)
Quarter: 2010Q2

REPORT INFORMATION
  Report Type: 
  Country: None (occurrence: None)
  Receive Date: 20100415
  Receipt Date: 20100405
  Transmission Date: 20101027
  Serious: Yes (Other)
  Sender: FDA-Public Use
  Company Number: BR-ABBOTT-10P-020-0617501-00

PATIENT
  Sex: Female
  Weight: 70 kg

DRUGS (11)
  1. HUMIRA [Suspect]
     Indication: RHEUMATOID ARTHRITIS
     Route: 058
  2. PAROXETINE HCL [Concomitant]
     Indication: DEPRESSION
     Route: 048
  3. DEFLAZACORT [Concomitant]
     Indication: RHEUMATOID ARTHRITIS
     Route: 048
  4. DEFLAZACORT [Concomitant]
     Indication: PAIN
  5. SODIUM DICLOFENAC, CODEINE [Concomitant]
     Indication: RHEUMATOID ARTHRITIS
     Route: 048
  6. PREGABALIN [Concomitant]
     Indication: FIBROMYALGIA
     Route: 048
  7. TIZANIDINE HCL [Concomitant]
     Indication: MUSCLE RELAXANT THERAPY
     Route: 048
  8. CLONAZEPAM [Concomitant]
     Indication: INSOMNIA
     Route: 048
  9. DICLOFENAC;CODEINE PHOSPHATE (CODATEN) [Concomitant]
     Indication: PAIN
     Route: 048
  10. METHOTREXATE [Concomitant]
     Indication: ARTHRITIS
     Route: 048
  11. SIDARLUD [Concomitant]
     Indication: ANXIOLYTIC THERAPY
     Route: 048

REACTIONS (5)
  - ABDOMINAL PAIN [None]
  - INJECTION SITE PAIN [None]
  - JOINT SWELLING [None]
  - OEDEMA PERIPHERAL [None]
  - TENDON RUPTURE [None]
